FAERS Safety Report 10262169 (Version 1)
Quarter: 2014Q2

REPORT INFORMATION
  Report Type: Spontaneous
  Country: US (occurrence: None)
  Receive Date: 20140624
  Receipt Date: 20140624
  Transmission Date: 20141212
  Serious: Yes (Other)
  Sender: FDA-Public Use
  Company Number: None

PATIENT
  Age: 62 Year
  Sex: Male
  Weight: 77.11 kg

DRUGS (1)
  1. LIDOCAINE WITH EPINEPHRINE [Suspect]
     Indication: LOCAL ANAESTHESIA
     Dosage: 22 CC, SUBCUTANEOUS
     Route: 058
     Dates: start: 20130925

REACTIONS (4)
  - Convulsion [None]
  - Heart rate increased [None]
  - No reaction on previous exposure to drug [None]
  - Product quality issue [None]
